FAERS Safety Report 5721830-X (Version None)
Quarter: 2008Q2

REPORT INFORMATION
  Report Type: 
  Country: None (occurrence: None)
  Receive Date: 20080429
  Receipt Date: 20070611
  Transmission Date: 20081010
  Serious: No
  Sender: FDA-Public Use
  Company Number: US-ASTRAZENECA-2007UW13659

PATIENT
  Age: 73 Year
  Sex: Female
  Weight: 64.4 kg

DRUGS (7)
  1. NEXIUM [Suspect]
     Indication: GASTROOESOPHAGEAL REFLUX DISEASE
     Route: 048
  2. NORTRIPTYLINE HCL [Concomitant]
  3. LASIX [Concomitant]
  4. DITROPAN [Concomitant]
  5. LIPITOR [Concomitant]
  6. K-DUR [Concomitant]
  7. VERAPAMIL [Concomitant]

REACTIONS (7)
  - ABDOMINAL DISTENSION [None]
  - ERYTHEMA [None]
  - OEDEMA PERIPHERAL [None]
  - PAIN IN EXTREMITY [None]
  - PITTING OEDEMA [None]
  - TENDERNESS [None]
  - WEIGHT INCREASED [None]
